FAERS Safety Report 4907127-6 (Version None)
Quarter: 2006Q1

REPORT INFORMATION
  Report Type: 
  Country: None (occurrence: None)
  Receive Date: 20060206
  Receipt Date: 20060119
  Transmission Date: 20060701
  Serious: Yes (Hospitalization)
  Sender: FDA-Public Use
  Company Number: 221625

PATIENT
  Age: 65 Year
  Sex: Female

DRUGS (4)
  1. AVASTIN (BEVACIZUMAB) PWDR + SOLVENT, INFUSION SOLN, 100MG [Suspect]
     Indication: COLORECTAL CANCER METASTATIC
     Dosage: 550 MG, Q3W, INTRAVENOUS
     Route: 042
     Dates: start: 20051012
  2. CAPECITABINE (CAPECITABINE) [Suspect]
     Indication: COLORECTAL CANCER METASTATIC
     Dosage: 1800 MG, BID, ORAL
     Route: 048
     Dates: start: 20051012
  3. OXALIPLATIN (OXALIPLATIN) [Suspect]
     Indication: COLORECTAL CANCER
     Dosage: 240 MG, Q3W, INTRAVENOUS
     Route: 042
     Dates: start: 20051012
  4. METOCLOPRAMIDE (METOCLOPRAMIDE HYDROCHLORIDE) [Concomitant]

REACTIONS (2)
  - PYREXIA [None]
  - WHITE BLOOD CELL COUNT DECREASED [None]
